FAERS Safety Report 6780825-8 (Version None)
Quarter: 2010Q2

REPORT INFORMATION
  Report Type: 
  Country: None (occurrence: None)
  Receive Date: 20100621
  Receipt Date: 20100611
  Transmission Date: 20101027
  Serious: Yes (Other)
  Sender: FDA-Public Use
  Company Number: CO-WYE-H15676410

PATIENT
  Sex: Female

DRUGS (2)
  1. PREMARIN [Suspect]
     Indication: HORMONE REPLACEMENT THERAPY
     Dosage: TABLET STRENGTH WAS 0.3 MG BUT DAILY DOSAGE TAKEN UNKNOWN
     Route: 048
     Dates: start: 19900101, end: 20100526
  2. PREMARIN [Suspect]
     Dosage: TABLET STRENGTH WAS 0.3 MG BUT DAILY DOSAGE TAKEN UNKNOWN
     Route: 048
     Dates: start: 20100609

REACTIONS (4)
  - BREAST FIBROMA [None]
  - DRUG DEPENDENCE [None]
  - FIBROCYSTIC BREAST DISEASE [None]
  - MALAISE [None]
